FAERS Safety Report 20735384 (Version 1)
Quarter: 2022Q2

REPORT INFORMATION
  Report Type: Spontaneous
  Country: US (occurrence: None)
  Receive Date: 20220421
  Receipt Date: 20220421
  Transmission Date: 20220721
  Serious: Yes (Hospitalization, Disabling, Other)
  Sender: FDA-Public Use
  Company Number: None

PATIENT
  Age: 8 Year
  Sex: Female
  Weight: 20.25 kg

DRUGS (1)
  1. METHYLPHENIDATE [Suspect]
     Active Substance: METHYLPHENIDATE
     Indication: Attention deficit hyperactivity disorder
     Dosage: OTHER QUANTITY : 1 TABLET(S);?
     Route: 048
     Dates: start: 20220402, end: 20220417

REACTIONS (15)
  - Feeling abnormal [None]
  - Disturbance in attention [None]
  - Condition aggravated [None]
  - Seizure [None]
  - Developmental regression [None]
  - Urinary incontinence [None]
  - Memory impairment [None]
  - Restlessness [None]
  - Insomnia [None]
  - Confusional state [None]
  - Anxiety [None]
  - Catatonia [None]
  - Agitation [None]
  - Product quality issue [None]
  - Repetitive speech [None]

NARRATIVE: CASE EVENT DATE: 20220411
